FAERS Safety Report 16321234 (Version 1)
Quarter: 2019Q2

REPORT INFORMATION
  Report Type: Spontaneous
  Country: CA (occurrence: CA)
  Receive Date: 20190516
  Receipt Date: 20190516
  Transmission Date: 20190711
  Serious: Yes (Death)
  Sender: FDA-Public Use
  Company Number: CA-TEVA-2019-CA-1048718

PATIENT
  Age: 29 Year
  Sex: Female
  Weight: 104 kg

DRUGS (6)
  1. FENTANYL. [Suspect]
     Active Substance: FENTANYL
     Route: 065
  2. CLONAZEPAM. [Concomitant]
     Active Substance: CLONAZEPAM
  3. BUPRENORPHINE/NALOXONE [Concomitant]
     Active Substance: BUPRENORPHINE\NALOXONE
  4. METHADONE [Concomitant]
     Active Substance: METHADONE HYDROCHLORIDE
  5. COCAINE [Suspect]
     Active Substance: COCAINE
     Route: 065
  6. CITALOPRAM [Concomitant]
     Active Substance: CITALOPRAM HYDROBROMIDE

REACTIONS (1)
  - Toxicity to various agents [Fatal]
